FAERS Safety Report 20033672 (Version 1)
Quarter: 2021Q4

REPORT INFORMATION
  Report Type: Spontaneous
  Country: US (occurrence: US)
  Receive Date: 20211104
  Receipt Date: 20211104
  Transmission Date: 20220304
  Serious: Yes (Death, Hospitalization)
  Sender: FDA-Public Use
  Company Number: US-drreddys-LIT/USA/21/0143460

PATIENT
  Age: 63 Year
  Sex: Female

DRUGS (3)
  1. IBUPROFEN [Suspect]
     Active Substance: IBUPROFEN
     Indication: Product used for unknown indication
  2. TRAMADOL [Suspect]
     Active Substance: TRAMADOL
     Indication: Product used for unknown indication
  3. HYDROCODONE [Suspect]
     Active Substance: HYDROCODONE
     Indication: Product used for unknown indication

REACTIONS (7)
  - Toxicity to various agents [Fatal]
  - Toxicity to various agents [Unknown]
  - Hypotension [Unknown]
  - Acute lung injury [Unknown]
  - Rhabdomyolysis [Unknown]
  - Depressed level of consciousness [Unknown]
  - Hepatotoxicity [Unknown]
